FAERS Safety Report 5286455-1 (Version None)
Quarter: 2007Q2

REPORT INFORMATION
  Report Type: 
  Country: None (occurrence: None)
  Receive Date: 20070404
  Receipt Date: 20070327
  Transmission Date: 20071010
  Serious: Yes (Hospitalization)
  Sender: FDA-Public Use
  Company Number: US-JNJFOC-20070306801

PATIENT
  Sex: Male

DRUGS (14)
  1. FENTANYL TRANSDERMAL SYSTEM [Suspect]
     Route: 062
  2. FENTANYL TRANSDERMAL SYSTEM [Suspect]
     Route: 062
  3. FENTANYL TRANSDERMAL SYSTEM [Suspect]
     Route: 062
  4. FENTANYL TRANSDERMAL SYSTEM [Suspect]
     Indication: PAIN
     Route: 062
  5. OXYCODONE HCL [Suspect]
     Route: 048
  6. OXYCODONE HCL [Suspect]
     Indication: BREAKTHROUGH PAIN
     Route: 048
  7. PROMETHAZINE [Suspect]
     Indication: NAUSEA
     Route: 048
  8. AMBIEN [Concomitant]
     Indication: SLEEP DISORDER
     Route: 048
  9. COREG [Concomitant]
     Route: 048
  10. LANTUS [Concomitant]
     Indication: DIABETES MELLITUS
     Route: 058
  11. MEGACE [Concomitant]
     Route: 048
  12. MIRTAZAPINE [Concomitant]
     Route: 048
  13. NOVALOG INSULIN [Concomitant]
     Indication: DIABETES MELLITUS
     Route: 058
  14. PROTONIX [Concomitant]
     Indication: GASTROOESOPHAGEAL REFLUX DISEASE
     Route: 048

REACTIONS (10)
  - BLOOD GLUCOSE ABNORMAL [None]
  - CONSTIPATION [None]
  - FEELING ABNORMAL [None]
  - MYDRIASIS [None]
  - NAUSEA [None]
  - NEOPLASM RECURRENCE [None]
  - PAIN [None]
  - PANCREATIC CARCINOMA [None]
  - SOMNOLENCE [None]
  - WEIGHT DECREASED [None]
